FAERS Safety Report 16199115 (Version 1)
Quarter: 2019Q2

REPORT INFORMATION
  Report Type: Spontaneous
  Country: IT (occurrence: IT)
  Receive Date: 20190415
  Receipt Date: 20190415
  Transmission Date: 20190711
  Serious: Yes (Hospitalization)
  Sender: FDA-Public Use
  Company Number: IT-TEVA-2019-IT-1037396

PATIENT
  Age: 81 Year
  Sex: Female

DRUGS (8)
  1. BISOPROLOL FUMARATE. [Suspect]
     Active Substance: BISOPROLOL FUMARATE
     Indication: MYOCARDIAL ISCHAEMIA
     Dosage: 5 MILLIGRAM DAILY;
     Route: 048
     Dates: start: 20180101, end: 20180318
  2. GABAPENTIN. [Concomitant]
     Active Substance: GABAPENTIN
  3. VERAPAMIL [Suspect]
     Active Substance: VERAPAMIL HYDROCHLORIDE
     Indication: MYOCARDIAL ISCHAEMIA
     Dosage: 240 MILLIGRAM DAILY;
     Route: 048
     Dates: start: 20180101, end: 20180318
  4. NEXIUM [Concomitant]
     Active Substance: ESOMEPRAZOLE MAGNESIUM
  5. QUETIAPINE. [Concomitant]
     Active Substance: QUETIAPINE
  6. INEGY 10 MG/20 MG COMPRESSE [Concomitant]
  7. LASIX [Concomitant]
     Active Substance: FUROSEMIDE
  8. SEREUPIN [Concomitant]
     Active Substance: PAROXETINE HYDROCHLORIDE

REACTIONS (4)
  - Respiratory failure [Unknown]
  - Presyncope [Unknown]
  - Dyspnoea [Unknown]
  - Bradycardia [Unknown]

NARRATIVE: CASE EVENT DATE: 20180318
